FAERS Safety Report 9868401 (Version 3)
Quarter: 2014Q1

REPORT INFORMATION
  Report Type: Report from Study
  Country: US (occurrence: US)
  Receive Date: 20140204
  Receipt Date: 20140307
  Transmission Date: 20141002
  Serious: Yes (Other)
  Sender: FDA-Public Use
  Company Number: PHEH2014US002398

PATIENT
  Sex: Male

DRUGS (2)
  1. ILARIS [Suspect]
     Indication: CRYOPYRIN ASSOCIATED PERIODIC SYNDROME
     Dosage: 150 ML, EVERY 8 WEEKS
     Dates: start: 20131001
  2. ILARIS [Suspect]
     Dosage: 150 ML, EVERY 6 WEEKS

REACTIONS (8)
  - Deafness [Unknown]
  - Amnesia [Unknown]
  - Coordination abnormal [Unknown]
  - Balance disorder [Unknown]
  - Anosmia [Unknown]
  - Eye disorder [Unknown]
  - Malaise [Not Recovered/Not Resolved]
  - Drug ineffective [Unknown]
